FAERS Safety Report 22526297 (Version 1)
Quarter: 2023Q2

REPORT INFORMATION
  Report Type: Spontaneous
  Country: US (occurrence: US)
  Receive Date: 20230606
  Receipt Date: 20230606
  Transmission Date: 20230722
  Serious: No
  Sender: FDA-Public Use
  Company Number: US-PFIZER INC-202300209310

PATIENT
  Sex: Female

DRUGS (1)
  1. DOCETAXEL [Suspect]
     Active Substance: DOCETAXEL
     Dosage: UNK

REACTIONS (2)
  - Drug hypersensitivity [Unknown]
  - Pain [Unknown]
